FAERS Safety Report 6920046-9 (Version None)
Quarter: 2010Q3

REPORT INFORMATION
  Report Type: 
  Country: None (occurrence: None)
  Receive Date: 20100811
  Receipt Date: 20100730
  Transmission Date: 20110219
  Serious: Yes (Life-Threatening, Hospitalization)
  Sender: FDA-Public Use
  Company Number: DK-PFIZER INC-2010095660

PATIENT
  Age: 25 Year
  Sex: Female

DRUGS (7)
  1. ADRIAMYCIN PFS [Suspect]
     Indication: LYMPHOMA
     Dosage: 90 MG, 3X/WEEK
     Route: 042
     Dates: start: 20091016, end: 20091117
  2. MABTHERA [Suspect]
     Indication: LYMPHOMA
     Dosage: 700 MG, 3X/WEEK
     Route: 042
     Dates: start: 20091016, end: 20091117
  3. SENDOXAN [Suspect]
     Indication: LYMPHOMA
     Dosage: 1400 MG, 3X/WEEK
     Route: 042
     Dates: start: 20091016, end: 20091117
  4. ONCOVIN [Suspect]
     Indication: LYMPHOMA
     Dosage: 2 MG, 3X/WEEK
     Dates: start: 20091016, end: 20091117
  5. PREDNISOLONE [Concomitant]
     Indication: NAUSEA
     Dosage: UNK
     Dates: start: 20091016, end: 20091117
  6. ALLOPURINOL [Concomitant]
     Dosage: 300 MG, 1X/DAY
     Dates: start: 20091016, end: 20091117
  7. SOLU-MEDROL [Concomitant]
     Indication: NAUSEA
     Dosage: UNK
     Dates: start: 20091016, end: 20091117

REACTIONS (2)
  - PNEUMONIA [None]
  - PNEUMONITIS [None]
